FAERS Safety Report 7593400-2 (Version None)
Quarter: 2011Q2

REPORT INFORMATION
  Report Type: 
  Country: None (occurrence: None)
  Receive Date: 20110628
  Receipt Date: 20110613
  Transmission Date: 20111010
  Serious: Yes (Hospitalization)
  Sender: FDA-Public Use
  Company Number: DSJ-2011-12100

PATIENT
  Age: 60 Year
  Sex: Male

DRUGS (1)
  1. BENICAR HCT [Suspect]
     Indication: HYPERTENSION
     Dosage: 40/12.5 MGT (1 IN 1 D), PER ORAL
     Route: 048
     Dates: start: 20070101

REACTIONS (1)
  - GUILLAIN-BARRE SYNDROME [None]
